FAERS Safety Report 4607623-5 (Version None)
Quarter: 2005Q1

REPORT INFORMATION
  Report Type: 
  Country: None (occurrence: None)
  Receive Date: 20050228
  Receipt Date: 20050125
  Transmission Date: 20050727
  Serious: No
  Sender: FDA-Public Use
  Company Number: FABR-10982

PATIENT
  Age: 54 Year
  Sex: Male
  Weight: 75 kg

DRUGS (3)
  1. FABRAZYME [Suspect]
     Indication: FABRY'S DISEASE
     Dosage: 1 MG/KG Q2WKS IV
     Route: 042
     Dates: start: 20030821
  2. CLARITIN [Concomitant]
  3. TYLENOL (CAPLET) [Concomitant]

REACTIONS (3)
  - FEELING COLD [None]
  - PAIN IN EXTREMITY [None]
  - PERIPHERAL COLDNESS [None]
